FAERS Safety Report 6237757-3 (Version None)
Quarter: 2009Q2

REPORT INFORMATION
  Report Type: 
  Country: None (occurrence: None)
  Receive Date: 20090618
  Receipt Date: 20090605
  Transmission Date: 20091009
  Serious: Yes (Death)
  Sender: FDA-Public Use
  Company Number: 1-18722693

PATIENT
  Age: 60 Year
  Sex: Female

DRUGS (1)
  1. FENTANYL-50 [Suspect]
     Indication: ARTHRALGIA
     Dosage: 50 MCG/HR, TRANSDERMAL
     Route: 062

REACTIONS (1)
  - MYOCARDIAL INFARCTION [None]
